FAERS Safety Report 7511650-8 (Version None)
Quarter: 2011Q2

REPORT INFORMATION
  Report Type: 
  Country: None (occurrence: None)
  Receive Date: 20110531
  Receipt Date: 20110526
  Transmission Date: 20111010
  Serious: Yes (Life-Threatening, Other)
  Sender: FDA-Public Use
  Company Number: CN-PFIZER INC-2011100407

PATIENT
  Age: 8 Month
  Sex: Male

DRUGS (5)
  1. VFEND [Concomitant]
     Indication: INFECTION
  2. MEROPENEM [Concomitant]
     Indication: INFECTION
  3. ZYVOX [Concomitant]
     Indication: INFECTION
  4. CEFOPERAZONE SODIUM [Suspect]
     Indication: PNEUMONIA
     Dosage: UNK
     Route: 041
     Dates: start: 20110330, end: 20110403
  5. TEICOPLANIN [Concomitant]
     Indication: INFECTION

REACTIONS (2)
  - ERYTHEMA MULTIFORME [None]
  - RASH [None]
